FAERS Safety Report 25132048 (Version 1)
Quarter: 2025Q1

REPORT INFORMATION
  Report Type: Spontaneous
  Country: GR (occurrence: GR)
  Receive Date: 20250328
  Receipt Date: 20250328
  Transmission Date: 20250408
  Serious: Yes (Other)
  Sender: BOEHRINGER INGELHEIM
  Company Number: GR-BoehringerIngelheim-2025-BI-017815

PATIENT
  Age: 77 Year
  Sex: Female

DRUGS (4)
  1. PRAMIPEXOLE [Suspect]
     Active Substance: PRAMIPEXOLE
     Indication: Restless legs syndrome
  2. PRAMIPEXOLE [Suspect]
     Active Substance: PRAMIPEXOLE
  3. NEBIVOLOL HYDROCHLORIDE [Concomitant]
     Active Substance: NEBIVOLOL HYDROCHLORIDE
     Indication: Product used for unknown indication
  4. EZETIMIBE\ROSUVASTATIN ZINC [Concomitant]
     Active Substance: EZETIMIBE\ROSUVASTATIN ZINC
     Indication: Dyslipidaemia

REACTIONS (2)
  - Macular degeneration [Not Recovered/Not Resolved]
  - Vision blurred [Not Recovered/Not Resolved]
